FAERS Safety Report 8029576-2 (Version None)
Quarter: 2012Q1

REPORT INFORMATION
  Report Type: 
  Country: None (occurrence: None)
  Receive Date: 20120109
  Receipt Date: 20120104
  Transmission Date: 20120608
  Serious: No
  Sender: FDA-Public Use
  Company Number: US-PFIZER INC-2012003970

PATIENT
  Sex: Male
  Weight: 99.773 kg

DRUGS (6)
  1. ACCURETIC [Suspect]
     Dosage: HALF TABLETS OF 20 MG, DAILY
  2. HYTRIN [Concomitant]
     Indication: PROSTATIC DISORDER
     Dosage: ^250 MG^, DAILY
  3. LIPITOR [Suspect]
     Indication: BLOOD CHOLESTEROL ABNORMAL
     Dosage: 10 MG, DAILY
     Route: 048
  4. LIPITOR [Suspect]
     Dosage: 40 MG, DAILY
  5. LIPITOR [Suspect]
     Dosage: 60 MG, DAILY
     Route: 048
  6. ACCURETIC [Suspect]
     Indication: BLOOD PRESSURE ABNORMAL
     Dosage: 20 MG, DAILY
     Route: 048

REACTIONS (2)
  - ABNORMAL DREAMS [None]
  - FATIGUE [None]
